FAERS Safety Report 5021279-1 (Version None)
Quarter: 2006Q2

REPORT INFORMATION
  Report Type: 
  Country: None (occurrence: None)
  Receive Date: 20060608
  Receipt Date: 20060601
  Transmission Date: 20061013
  Serious: Yes (Other)
  Sender: FDA-Public Use
  Company Number: CA-GLAXOSMITHKLINE-A0607955A

PATIENT
  Age: 47 Year
  Sex: Male

DRUGS (7)
  1. AVANDIA [Suspect]
     Indication: DRUG USE FOR UNKNOWN INDICATION
     Dosage: 4MG PER DAY
     Route: 048
  2. GLUCONORM [Concomitant]
  3. METFORMIN [Concomitant]
  4. MONOPRIL [Concomitant]
  5. PLAVIX [Concomitant]
  6. CIALIS [Concomitant]
  7. AMLODIPINE [Concomitant]

REACTIONS (3)
  - BLINDNESS UNILATERAL [None]
  - MACULAR OEDEMA [None]
  - VISUAL ACUITY REDUCED [None]
